FAERS Safety Report 13242953 (Version 1)
Quarter: 2017Q1

REPORT INFORMATION
  Report Type: Spontaneous
  Country: FR (occurrence: FR)
  Receive Date: 20170216
  Receipt Date: 20170216
  Transmission Date: 20170428
  Serious: Yes (Hospitalization)
  Sender: FDA-Public Use
  Company Number: FR-LANNETT COMPANY, INC.-FR-2017LAN000551

PATIENT
  Age: 55 Year
  Sex: Male

DRUGS (1)
  1. BACLOFEN (20MG) [Suspect]
     Active Substance: BACLOFEN
     Indication: PARAPLEGIA
     Dosage: UNK
     Route: 037

REACTIONS (12)
  - Discomfort [Recovered/Resolved]
  - Blood pressure increased [Recovered/Resolved]
  - Electrocardiogram ST segment elevation [Recovered/Resolved]
  - Complication associated with device [Recovered/Resolved]
  - Heart rate increased [Recovered/Resolved]
  - Troponin increased [Recovered/Resolved]
  - Drug withdrawal syndrome [Recovered/Resolved]
  - Muscle spasms [Recovered/Resolved]
  - Ejection fraction decreased [Recovered/Resolved]
  - Pruritus [Recovered/Resolved]
  - Stress cardiomyopathy [Recovered/Resolved]
  - Chest pain [Recovered/Resolved]
